FAERS Safety Report 18750802 (Version 2)
Quarter: 2021Q1

REPORT INFORMATION
  Report Type: Spontaneous
  Country: US (occurrence: US)
  Receive Date: 20210118
  Receipt Date: 20210308
  Transmission Date: 20210419
  Serious: Yes (Hospitalization, Other)
  Sender: FDA-Public Use
  Company Number: US-BRISTOL-MYERS SQUIBB COMPANY-BMS-2021-003849

PATIENT
  Age: 62 Year
  Sex: Male

DRUGS (1)
  1. SPRYCEL [Suspect]
     Active Substance: DASATINIB
     Indication: CHRONIC MYELOID LEUKAEMIA
     Dosage: 100 MILLIGRAM, QD
     Route: 048
     Dates: start: 20200522

REACTIONS (5)
  - Gastrointestinal sounds abnormal [Unknown]
  - Abdominal pain upper [Unknown]
  - Diarrhoea [Unknown]
  - Frequent bowel movements [Unknown]
  - Gastric infection [Recovered/Resolved]

NARRATIVE: CASE EVENT DATE: 20210114
